FAERS Safety Report 13622744 (Version 1)
Quarter: 2017Q2

REPORT INFORMATION
  Report Type: Spontaneous
  Country: US (occurrence: US)
  Receive Date: 20170607
  Receipt Date: 20170607
  Transmission Date: 20170830
  Serious: No
  Sender: FDA-Public Use
  Company Number: US-009507513-1706USA002258

PATIENT
  Age: 22 Year
  Sex: Female
  Weight: 112.93 kg

DRUGS (9)
  1. LAMOTRIGINE. [Concomitant]
     Active Substance: LAMOTRIGINE
  2. NEXPLANON [Suspect]
     Active Substance: ETONOGESTREL
     Indication: CONTRACEPTION
     Dosage: EVERY 3 YEARS
     Route: 059
     Dates: start: 20170525
  3. ZIPRASIDONE HYDROCHLORIDE. [Concomitant]
     Active Substance: ZIPRASIDONE HYDROCHLORIDE
  4. TRAZODONE HYDROCHLORIDE. [Concomitant]
     Active Substance: TRAZODONE HYDROCHLORIDE
  5. TIZANIDINE HYDROCHLORIDE. [Concomitant]
     Active Substance: TIZANIDINE HYDROCHLORIDE
  6. VALACYCLOVIR HYDROCHLORIDE. [Concomitant]
     Active Substance: VALACYCLOVIR HYDROCHLORIDE
  7. SINGULAIR [Concomitant]
     Active Substance: MONTELUKAST SODIUM
  8. MIDOL (ASPIRIN (+) CAFFEINE (+) CINNAMEDRINE) [Concomitant]
  9. TRAMADOL HYDROCHLORIDE. [Concomitant]
     Active Substance: TRAMADOL HYDROCHLORIDE

REACTIONS (14)
  - Back pain [Not Recovered/Not Resolved]
  - Nausea [Not Recovered/Not Resolved]
  - Breast tenderness [Not Recovered/Not Resolved]
  - Headache [Not Recovered/Not Resolved]
  - Dizziness [Not Recovered/Not Resolved]
  - Dyspnoea [Not Recovered/Not Resolved]
  - Mood altered [Not Recovered/Not Resolved]
  - Amenorrhoea [Not Recovered/Not Resolved]
  - Dyspareunia [Not Recovered/Not Resolved]
  - Muscle spasms [Not Recovered/Not Resolved]
  - Implant site pain [Not Recovered/Not Resolved]
  - Fatigue [Not Recovered/Not Resolved]
  - Decreased appetite [Not Recovered/Not Resolved]
  - Abdominal pain [Not Recovered/Not Resolved]

NARRATIVE: CASE EVENT DATE: 2017
